FAERS Safety Report 18597968 (Version 1)
Quarter: 2020Q4

REPORT INFORMATION
  Report Type: Spontaneous
  Country: None (occurrence: US)
  Receive Date: 20201210
  Receipt Date: 20201210
  Transmission Date: 20210114
  Serious: No
  Sender: FDA-Public Use
  Company Number: US-LUPIN PHARMACEUTICALS INC.-2020-09736

PATIENT
  Age: 49 Year
  Sex: Male

DRUGS (1)
  1. CEFDINIR. [Suspect]
     Active Substance: CEFDINIR
     Indication: PHARYNGITIS BACTERIAL
     Dosage: UNK
     Route: 065

REACTIONS (1)
  - Headache [Not Recovered/Not Resolved]
